FAERS Safety Report 18061780 (Version 1)
Quarter: 2020Q3

REPORT INFORMATION
  Report Type: Spontaneous
  Country: CA (occurrence: CA)
  Receive Date: 20200723
  Receipt Date: 20200723
  Transmission Date: 20201103
  Serious: Yes (Hospitalization)
  Sender: FDA-Public Use
  Company Number: CA-MYLANLABS-2020M1066652

PATIENT
  Age: 27 Month
  Sex: Male
  Weight: 15.7 kg

DRUGS (6)
  1. VALPROIC ACID. [Suspect]
     Active Substance: VALPROIC ACID
     Indication: EPILEPSY
     Dosage: 250 MILLIGRAM, 0.5 DAY
     Route: 065
  2. FELBAMATE. [Concomitant]
     Active Substance: FELBAMATE
     Indication: EPILEPSY
     Dosage: 300 MILLIGRAM, 0.5 DAY, RECEIVING SINCE THE AGE OF 24 MONTHS
     Route: 065
  3. VALPROIC ACID. [Suspect]
     Active Substance: VALPROIC ACID
     Dosage: 300 MILLIGRAM, 0.5 DAY APPROXIMATELY 38 MG/KG/DAY
     Route: 065
  4. LEVETIRACETAM. [Concomitant]
     Active Substance: LEVETIRACETAM
     Indication: EPILEPSY
     Dosage: 250 MILLIGRAM, 0.5 DAY
     Route: 065
  5. CLOBAZAM. [Concomitant]
     Active Substance: CLOBAZAM
     Indication: EPILEPSY
     Dosage: 12.5 MILLIGRAM, 0.5 DAY, RECEIVING SINCE THE AGE OF 12 MONTHS
     Route: 048
  6. HYDROCORTISONE. [Concomitant]
     Active Substance: HYDROCORTISONE
     Indication: ADRENAL INSUFFICIENCY
     Dosage: LOW DOSE
     Route: 065

REACTIONS (4)
  - Coagulopathy [Recovered/Resolved]
  - Depressed level of consciousness [Recovered/Resolved]
  - Ascites [Recovered/Resolved]
  - Pancreatitis [Recovered/Resolved]
